FAERS Safety Report 24367717 (Version 1)
Quarter: 2024Q3

REPORT INFORMATION
  Report Type: Report from Study
  Country: US (occurrence: US)
  Receive Date: 20240926
  Receipt Date: 20240926
  Transmission Date: 20241016
  Serious: Yes (Hospitalization, Other)
  Sender: TAKEDA
  Company Number: US-SHIRE-US201925842

PATIENT
  Sex: Female

DRUGS (4)
  1. TEDUGLUTIDE [Suspect]
     Active Substance: TEDUGLUTIDE
     Indication: Short-bowel syndrome
     Dosage: 2.97 MILLIGRAM, QD
     Route: 058
     Dates: start: 201910
  2. TEDUGLUTIDE [Suspect]
     Active Substance: TEDUGLUTIDE
     Indication: Short-bowel syndrome
     Dosage: 2.97 MILLIGRAM, QD
     Route: 058
     Dates: start: 201910
  3. TEDUGLUTIDE [Suspect]
     Active Substance: TEDUGLUTIDE
     Indication: Short-bowel syndrome
     Dosage: 2.97 MILLIGRAM, QD
     Route: 058
     Dates: start: 201910
  4. TEDUGLUTIDE [Suspect]
     Active Substance: TEDUGLUTIDE
     Indication: Short-bowel syndrome
     Dosage: 2.97 MILLIGRAM, QD
     Route: 058
     Dates: start: 201910

REACTIONS (5)
  - Device related thrombosis [Unknown]
  - Diarrhoea [Unknown]
  - Product dose omission issue [Unknown]
  - Fluid retention [Unknown]
  - Dyspnoea [Unknown]
